FAERS Safety Report 18824564 (Version 1)
Quarter: 2021Q1

REPORT INFORMATION
  Report Type: Spontaneous
  Country: US (occurrence: US)
  Receive Date: 20210202
  Receipt Date: 20210202
  Transmission Date: 20210419
  Serious: Yes (Hospitalization)
  Sender: FDA-Public Use
  Company Number: US-ROCHE-2757534

PATIENT
  Sex: Female
  Weight: 77.18 kg

DRUGS (2)
  1. TAMIFLU [Suspect]
     Active Substance: OSELTAMIVIR PHOSPHATE
     Indication: INFLUENZA
     Dosage: ONGOING: NO
     Route: 048
  2. TAMIFLU [Suspect]
     Active Substance: OSELTAMIVIR PHOSPHATE
     Dosage: ONGOING: NO
     Route: 048
     Dates: start: 2018, end: 2018

REACTIONS (4)
  - Tongue ulceration [Not Recovered/Not Resolved]
  - Dehydration [Recovered/Resolved]
  - Ageusia [Recovered/Resolved]
  - Weight decreased [Unknown]
